FAERS Safety Report 25574568 (Version 1)
Quarter: 2025Q3

REPORT INFORMATION
  Report Type: Report from Study
  Country: US (occurrence: US)
  Receive Date: 20250718
  Receipt Date: 20250718
  Transmission Date: 20251021
  Serious: Yes (Hospitalization, Other)
  Sender: JOHNSON AND JOHNSON
  Company Number: US-JNJFOC-20250718813

PATIENT
  Age: 17 Year
  Sex: Male

DRUGS (3)
  1. TREMFYA [Suspect]
     Active Substance: GUSELKUMAB
     Indication: Crohn^s disease
     Route: 058
     Dates: start: 20250711
  2. TREMFYA [Suspect]
     Active Substance: GUSELKUMAB
     Dosage: WEEK 0
     Route: 058
     Dates: start: 20250711
  3. ADALIMUMAB [Concomitant]
     Active Substance: ADALIMUMAB
     Indication: Product used for unknown indication

REACTIONS (3)
  - Pyrexia [Unknown]
  - Chills [Unknown]
  - Incorrect dose administered [Unknown]

NARRATIVE: CASE EVENT DATE: 20250712
